FAERS Safety Report 7900453-8 (Version None)
Quarter: 2011Q4

REPORT INFORMATION
  Report Type: 
  Country: None (occurrence: None)
  Receive Date: 20111108
  Receipt Date: 20111025
  Transmission Date: 20120403
  Serious: Yes (Hospitalization)
  Sender: FDA-Public Use
  Company Number: JP-CTI_01330_2011

PATIENT
  Age: 47 Year
  Sex: Female

DRUGS (6)
  1. MEIACT MS (CEFDITOREN PIVOXIL) [Suspect]
     Indication: C-REACTIVE PROTEIN INCREASED
     Dosage: FREQUENCY UNKNOWN
     Route: 048
     Dates: start: 20110207, end: 20110214
  2. METENOLONE ACETATE [Concomitant]
     Indication: PRODUCT USED FOR UNKNOWN INDICATION
     Dates: start: 20110112, end: 20110228
  3. BROTIZOLAM [Concomitant]
     Indication: PRODUCT USED FOR UNKNOWN INDICATION
     Route: 048
     Dates: start: 20101216, end: 20110228
  4. PHENYTOIN [Concomitant]
     Indication: PRODUCT USED FOR UNKNOWN INDICATION
     Dates: start: 20110202, end: 20110212
  5. MAGNESIUM OXIDE [Concomitant]
     Indication: PRODUCT USED FOR UNKNOWN INDICATION
     Dates: start: 20101216, end: 20110228
  6. MEIACT MS (CEFDITOREN PIVOXIL) [Suspect]
     Indication: PYREXIA
     Dosage: FREQUENCY UNKNOWN
     Route: 048
     Dates: start: 20110207, end: 20110214

REACTIONS (3)
  - CARNITINE DECREASED [None]
  - GRAND MAL CONVULSION [None]
  - FEELING JITTERY [None]
